FAERS Safety Report 5507685-7 (Version None)
Quarter: 2007Q4

REPORT INFORMATION
  Report Type: 
  Country: None (occurrence: None)
  Receive Date: 20071106
  Receipt Date: 20071026
  Transmission Date: 20080405
  Serious: Yes (Other)
  Sender: FDA-Public Use
  Company Number: B0486619A

PATIENT
  Sex: Male

DRUGS (4)
  1. SERETIDE [Suspect]
     Indication: ASTHMA
     Dosage: 250MCG UNKNOWN
     Route: 055
  2. SEREVENT [Concomitant]
     Route: 065
  3. BECOTIDE [Concomitant]
     Route: 065
  4. ISOPRENALINE HCL [Concomitant]
     Route: 055

REACTIONS (1)
  - ASTHMA [None]
